FAERS Safety Report 15021342 (Version 3)
Quarter: 2018Q3

REPORT INFORMATION
  Report Type: Report from Study
  Country: BR (occurrence: BR)
  Receive Date: 20180618
  Receipt Date: 20180902
  Transmission Date: 20181010
  Serious: Yes (Hospitalization, Other)
  Sender: FDA-Public Use
  Company Number: BR-UCBSA-2018025724

PATIENT
  Age: 15 Year
  Sex: Male
  Weight: 59 kg

DRUGS (8)
  1. TOFRANIL [Concomitant]
     Active Substance: IMIPRAMINE HYDROCHLORIDE
     Indication: PRODUCT USED FOR UNKNOWN INDICATION
     Dosage: 1 DF, ONCE DAILY (QD)
  2. TRILEPTAL [Suspect]
     Active Substance: OXCARBAZEPINE
     Indication: SEIZURE
     Dosage: UNK
     Dates: start: 201712, end: 201802
  3. TOFRANIL [Concomitant]
     Active Substance: IMIPRAMINE HYDROCHLORIDE
     Dosage: 1 DF, 2X/DAY (BID)
  4. LACOSAMIDE. [Suspect]
     Active Substance: LACOSAMIDE
     Dosage: 150 MG, 2X/DAY (BID)
     Route: 048
     Dates: start: 201802
  5. KEPPRA [Suspect]
     Active Substance: LEVETIRACETAM
     Indication: EPILEPSY
     Dosage: UNK, 2X/DAY (BID)
     Route: 048
     Dates: start: 201608, end: 201712
  6. LACOSAMIDE. [Suspect]
     Active Substance: LACOSAMIDE
     Indication: EPILEPSY
     Dosage: 100 MG, 2X/DAY (BID)
     Route: 048
     Dates: start: 201802, end: 201802
  7. KEPPRA [Suspect]
     Active Substance: LEVETIRACETAM
     Dosage: 2 TABLETS OF 750MG IN MORNING AND 3 TABLETS IN EVENING
     Route: 048
     Dates: start: 201802
  8. KEPPRA [Suspect]
     Active Substance: LEVETIRACETAM
     Dosage: 2250 MG, 2X/DAY (BID)
     Route: 048
     Dates: start: 201712, end: 201802

REACTIONS (12)
  - Chest injury [Unknown]
  - Seizure [Recovered/Resolved]
  - Epistaxis [Unknown]
  - Rhinorrhoea [Recovered/Resolved]
  - Disturbance in attention [Unknown]
  - Off label use [Unknown]
  - Prescribed overdose [Unknown]
  - Multiple-drug resistance [Unknown]
  - Nasal injury [Unknown]
  - Aggression [Recovered/Resolved]
  - Fall [Unknown]
  - Head injury [Unknown]

NARRATIVE: CASE EVENT DATE: 201710
